FAERS Safety Report 9040978 (Version 1)
Quarter: 2013Q1

REPORT INFORMATION
  Report Type: Spontaneous
  Country: US (occurrence: None)
  Receive Date: 20130123
  Receipt Date: 20130123
  Transmission Date: 20140127
  Serious: Yes (Life-Threatening, Hospitalization)
  Sender: FDA-Public Use
  Company Number: None

PATIENT
  Age: 79 Year
  Sex: Female
  Weight: 72.12 kg

DRUGS (2)
  1. CHERATUSSIN AC [Suspect]
     Indication: COUGH
     Dosage: 10MG/5MG  2 X A DAY
     Dates: start: 20121224, end: 20121227
  2. LINSPRILL [Concomitant]

REACTIONS (1)
  - Lip swelling [None]
